FAERS Safety Report 7425763-2 (Version None)
Quarter: 2011Q2

REPORT INFORMATION
  Report Type: 
  Country: None (occurrence: None)
  Receive Date: 20110420
  Receipt Date: 20110407
  Transmission Date: 20111010
  Serious: No
  Sender: FDA-Public Use
  Company Number: US-MYLANLABS-2011S1005230

PATIENT
  Sex: Female

DRUGS (14)
  1. MELATONIN [Concomitant]
  2. FOLIC ACID [Concomitant]
  3. CYCLOBENZAPRINE [Concomitant]
  4. RANITIDINE [Concomitant]
  5. CETIRIZINE HCL [Concomitant]
     Indication: HYPERSENSITIVITY
  6. FISH OIL [Concomitant]
  7. BENICAR HCT [Concomitant]
     Dosage: 20/6
  8. MAGNESIUM [Concomitant]
  9. ASPIRIN [Concomitant]
  10. IBUPROFEN [Concomitant]
  11. BUPROPION HYDROCHLORIDE [Suspect]
     Indication: DEPRESSION
     Dates: start: 20110201, end: 20110301
  12. D-3 [Concomitant]
  13. ZETIA [Concomitant]
  14. MULTI-VITAMIN [Concomitant]

REACTIONS (2)
  - DEPRESSION [None]
  - DRUG INEFFECTIVE [None]
